FAERS Safety Report 4744383-1 (Version None)
Quarter: 2005Q3

REPORT INFORMATION
  Report Type: 
  Country: None (occurrence: None)
  Receive Date: 20050809
  Receipt Date: 20050727
  Transmission Date: 20060218
  Serious: Yes (Death, Hospitalization)
  Sender: FDA-Public Use
  Company Number: MEDI-0003574

PATIENT
  Sex: Male

DRUGS (5)
  1. ETHYOL [Suspect]
     Indication: CHEMOTHERAPY
  2. ETHYOL [Suspect]
     Indication: RADIOTHERAPY
  3. RADIATION THERAPY [Concomitant]
  4. RADIATION THERAPY [Concomitant]
  5. CHEMOTHERAPY [Concomitant]

REACTIONS (3)
  - DISEASE PROGRESSION [None]
  - INJECTION SITE RASH [None]
  - STEVENS-JOHNSON SYNDROME [None]
